FAERS Safety Report 4754538-8 (Version None)
Quarter: 2005Q3

REPORT INFORMATION
  Report Type: 
  Country: None (occurrence: None)
  Receive Date: 20050829
  Receipt Date: 20050330
  Transmission Date: 20060218
  Serious: No
  Sender: FDA-Public Use
  Company Number: 0011601

PATIENT
  Age: 73 Year
  Sex: Female

DRUGS (1)
  1. ZOVIRAX [Suspect]
     Route: 061

REACTIONS (2)
  - OFF LABEL USE [None]
  - THERAPEUTIC RESPONSE DECREASED [None]
